FAERS Safety Report 8488162-0 (Version None)
Quarter: 2012Q3

REPORT INFORMATION
  Report Type: 
  Country: None (occurrence: None)
  Receive Date: 20120705
  Receipt Date: 20120630
  Transmission Date: 20120928
  Serious: Yes (Death)
  Sender: FDA-Public Use
  Company Number: MX-PFIZER INC-2012158011

PATIENT
  Age: 51 Year
  Sex: Female
  Weight: 51 kg

DRUGS (5)
  1. LYRICA [Suspect]
     Indication: NEURALGIA
     Dosage: 75 MG, 1X/DAY
     Route: 048
     Dates: start: 20120301
  2. NIFEDIPINE [Concomitant]
     Indication: PALPITATIONS
     Dosage: 30 MG, UNK
     Route: 048
  3. LYRICA [Suspect]
     Dosage: 150 MG, 1X/DAY
     Route: 048
     Dates: end: 20120627
  4. TRAMADOL [Concomitant]
     Dosage: 50 MG, UNK
     Route: 048
  5. METOPROLOL [Concomitant]
     Indication: TACHYCARDIA
     Dosage: UNK
     Route: 048

REACTIONS (1)
  - MYOCARDIAL INFARCTION [None]
